FAERS Safety Report 16566789 (Version 4)
Quarter: 2019Q4

REPORT INFORMATION
  Report Type: Report from Study
  Country: US (occurrence: US)
  Receive Date: 20190712
  Receipt Date: 20191220
  Transmission Date: 20200122
  Serious: Yes (Hospitalization)
  Sender: FDA-Public Use
  Company Number: US-ACTELION-A-NJ2019-192692

PATIENT
  Age: 44 Year
  Sex: Female
  Weight: 61.22 kg

DRUGS (4)
  1. SILDENAFIL CITRATE. [Concomitant]
     Active Substance: SILDENAFIL CITRATE
  2. OPSUMIT [Suspect]
     Active Substance: MACITENTAN
     Indication: PULMONARY ARTERIAL HYPERTENSION
     Dosage: 10 MG, QD
     Route: 048
  3. UPTRAVI [Suspect]
     Active Substance: SELEXIPAG
     Dosage: 1400 MCG, BID
     Route: 048
  4. UPTRAVI [Suspect]
     Active Substance: SELEXIPAG
     Indication: PULMONARY ARTERIAL HYPERTENSION
     Dosage: 1600 MCG, BID
     Route: 048

REACTIONS (15)
  - Hernia repair [Unknown]
  - Cardiac disorder [Recovered/Resolved]
  - Menorrhagia [Unknown]
  - Urinary tract infection [Unknown]
  - Pain [Unknown]
  - Malaise [Recovering/Resolving]
  - Hernia [Unknown]
  - Vomiting [Unknown]
  - Syncope [Unknown]
  - Dysmenorrhoea [Unknown]
  - Nausea [Recovered/Resolved]
  - Asthenia [Unknown]
  - Gait disturbance [Unknown]
  - Ovarian cyst [Unknown]
  - Headache [Recovered/Resolved]

NARRATIVE: CASE EVENT DATE: 201904
